FAERS Safety Report 4301358-4 (Version None)
Quarter: 2004Q1

REPORT INFORMATION
  Report Type: 
  Country: None (occurrence: None)
  Receive Date: 20040223
  Receipt Date: 20030603
  Transmission Date: 20041129
  Serious: No
  Sender: FDA-Public Use
  Company Number: US-GLAXOSMITHKLINE-A0410579A

PATIENT
  Sex: Female

DRUGS (2)
  1. NAVELBINE [Suspect]
     Route: 042
     Dates: start: 20030101
  2. PROTONIX [Concomitant]

REACTIONS (1)
  - GASTROOESOPHAGEAL REFLUX DISEASE [None]
